FAERS Safety Report 5271471-6 (Version None)
Quarter: 2007Q1

REPORT INFORMATION
  Report Type: 
  Country: None (occurrence: None)
  Receive Date: 20070321
  Receipt Date: 20070309
  Transmission Date: 20070707
  Serious: Yes (Hospitalization, Other)
  Sender: FDA-Public Use
  Company Number: AT-SHR-AT-2007-008372

PATIENT
  Age: 39 Year
  Sex: Male

DRUGS (6)
  1. CAMPATH [Suspect]
     Dosage: 20 MG, 1 DOSE
     Route: 042
     Dates: start: 20040901, end: 20040901
  2. CAMPATH [Suspect]
     Dosage: 20 MG, 1 DOSE
     Dates: start: 20040901, end: 20040901
  3. METHYLPREDNISOLONE 16MG TAB [Concomitant]
     Dosage: 500 MG, 1 DOSE
     Dates: start: 20040901, end: 20040901
  4. METHYLPREDNISOLONE 16MG TAB [Concomitant]
     Dosage: 250 MG, 1 DOSE
     Dates: start: 20040901, end: 20040901
  5. TACROLIMUS [Concomitant]
     Dosage: 8-12 NG/ML
     Dates: start: 20040901, end: 20040901
  6. SULFAMETHOXAZOLE W/TRIMETHOPRIM [Concomitant]
     Dates: start: 20040101, end: 20040101

REACTIONS (4)
  - HAEMOLYTIC URAEMIC SYNDROME [None]
  - HERPES SIMPLEX [None]
  - HYPERTENSION [None]
  - PYREXIA [None]
